FAERS Safety Report 10287650 (Version 2)
Quarter: 2014Q3

REPORT INFORMATION
  Report Type: Spontaneous
  Country: US (occurrence: US)
  Receive Date: 20140709
  Receipt Date: 20140709
  Transmission Date: 20150326
  Serious: No
  Sender: FDA-Public Use
  Company Number: US-GILEAD-2013-0077961

PATIENT
  Sex: Female

DRUGS (2)
  1. VENTAVIS [Concomitant]
     Active Substance: ILOPROST
  2. LETAIRIS [Suspect]
     Active Substance: AMBRISENTAN
     Indication: PRODUCT USED FOR UNKNOWN INDICATION
     Dosage: 5 MG, QD
     Dates: start: 20130227

REACTIONS (9)
  - Fatigue [Recovering/Resolving]
  - Throat irritation [Unknown]
  - Back pain [Unknown]
  - Dysphonia [Unknown]
  - Constipation [Not Recovered/Not Resolved]
  - Sinus disorder [Unknown]
  - Pruritus [Unknown]
  - Headache [Recovered/Resolved]
  - Asthenia [Unknown]
